FAERS Safety Report 25203937 (Version 1)
Quarter: 2025Q2

REPORT INFORMATION
  Report Type: Spontaneous
  Country: US (occurrence: US)
  Receive Date: 20250416
  Receipt Date: 20250416
  Transmission Date: 20250716
  Serious: Yes (Other)
  Sender: ATHENA
  Company Number: US-SABAL THERAPEUTICS LLC-2025-ATH-000014

PATIENT

DRUGS (1)
  1. OZOBAX [Suspect]
     Active Substance: BACLOFEN
     Indication: Hiccups
     Route: 065

REACTIONS (5)
  - Delirium [Recovered/Resolved]
  - Myoclonus [Recovered/Resolved]
  - Muscle spasticity [Recovered/Resolved]
  - Seizure [Recovered/Resolved]
  - Drug ineffective for unapproved indication [Unknown]
